FAERS Safety Report 21505950 (Version 3)
Quarter: 2023Q1

REPORT INFORMATION
  Report Type: Spontaneous
  Country: GB (occurrence: GB)
  Receive Date: 20221026
  Receipt Date: 20230330
  Transmission Date: 20230418
  Serious: Yes (Hospitalization, Other)
  Sender: FDA-Public Use
  Company Number: GB-SA-SAC20221017000724

PATIENT
  Sex: Male

DRUGS (1)
  1. PRALUENT [Suspect]
     Active Substance: ALIROCUMAB
     Indication: Arteriosclerosis coronary artery
     Dosage: 75 MG, QOW
     Route: 058

REACTIONS (5)
  - Sepsis [Unknown]
  - Ankle fracture [Unknown]
  - Gait disturbance [Unknown]
  - Chest pain [Unknown]
  - Dialysis [Unknown]

NARRATIVE: CASE EVENT DATE: 20220101
